FAERS Safety Report 24314369 (Version 3)
Quarter: 2024Q4

REPORT INFORMATION
  Report Type: Report from Study
  Country: US (occurrence: US)
  Receive Date: 20240913
  Receipt Date: 20241105
  Transmission Date: 20250115
  Serious: Yes (Other)
  Sender: ABBVIE
  Company Number: US-ABBVIE-5918820

PATIENT
  Age: 57 Year
  Sex: Female

DRUGS (3)
  1. SKYRIZI [Suspect]
     Active Substance: RISANKIZUMAB-RZAA
     Indication: Psoriatic arthropathy
     Route: 058
     Dates: start: 2022, end: 202409
  2. SKYRIZI [Suspect]
     Active Substance: RISANKIZUMAB-RZAA
     Route: 058
     Dates: start: 20240928
  3. FLUOCINONIDE [Concomitant]
     Active Substance: FLUOCINONIDE
     Indication: Product used for unknown indication
     Dates: start: 20241024

REACTIONS (5)
  - Meniscus injury [Unknown]
  - Oral herpes [Not Recovered/Not Resolved]
  - Pruritus [Recovered/Resolved]
  - Pyrexia [Not Recovered/Not Resolved]
  - Dry skin [Unknown]

NARRATIVE: CASE EVENT DATE: 20240901
